FAERS Safety Report 18913259 (Version 1)
Quarter: 2021Q1

REPORT INFORMATION
  Report Type: Spontaneous
  Country: IN (occurrence: IN)
  Receive Date: 20210219
  Receipt Date: 20210219
  Transmission Date: 20210420
  Serious: Yes (Hospitalization)
  Sender: FDA-Public Use
  Company Number: IN-MICRO LABS LIMITED-ML2021-00479

PATIENT
  Age: 30 Year
  Sex: Female

DRUGS (5)
  1. MEFENAMIC ACID. [Suspect]
     Active Substance: MEFENAMIC ACID
     Dosage: 10 TO 15 TABLETS DAILY
     Dates: start: 2018
  2. DICYCLOMINE [Suspect]
     Active Substance: DICYCLOMINE HYDROCHLORIDE
     Indication: STRESS
  3. MEFENAMIC ACID. [Suspect]
     Active Substance: MEFENAMIC ACID
     Indication: DYSMENORRHOEA
     Dates: start: 2007
  4. MEFENAMIC ACID. [Suspect]
     Active Substance: MEFENAMIC ACID
     Dosage: 2 TO 3 TABLETS DAILY
     Dates: start: 2014
  5. DICYCLOMINE [Suspect]
     Active Substance: DICYCLOMINE HYDROCHLORIDE
     Indication: DYSMENORRHOEA
     Dosage: 2?3 TABLET DAILY TO GET RELIEF FROM STRESS,INCREASED TO 10?15 TABLETS DAILY IN 2018

REACTIONS (11)
  - Drug dependence [Unknown]
  - Hyperhidrosis [Recovered/Resolved]
  - Anxiety [Recovered/Resolved]
  - Drug tolerance [Unknown]
  - Palpitations [Recovered/Resolved]
  - Drug abuse [Unknown]
  - Tachycardia [Recovered/Resolved]
  - Overdose [Unknown]
  - Withdrawal syndrome [Unknown]
  - Headache [Recovered/Resolved]
  - Restlessness [Recovered/Resolved]
